FAERS Safety Report 24146774 (Version 1)
Quarter: 2024Q3

REPORT INFORMATION
  Report Type: Spontaneous
  Country: BR (occurrence: BR)
  Receive Date: 20240729
  Receipt Date: 20240729
  Transmission Date: 20241017
  Serious: Yes (Disabling)
  Sender: UCB
  Company Number: BR-UCBSA-2024036307

PATIENT
  Age: 69 Year
  Sex: Male
  Weight: 90 kg

DRUGS (7)
  1. NEUPRO [Suspect]
     Active Substance: ROTIGOTINE
     Indication: Parkinson^s disease
     Dosage: 4 MILLIGRAM, ONCE DAILY (QD)
     Route: 062
     Dates: start: 202405
  2. NEUPRO [Suspect]
     Active Substance: ROTIGOTINE
     Dosage: TWO 2 MG PATCHES PER DAY
     Route: 062
  3. NEUPRO [Suspect]
     Active Substance: ROTIGOTINE
     Dosage: 2 MILLIGRAM, ONCE DAILY (QD)
     Route: 062
     Dates: start: 20240625
  4. NEUPRO [Suspect]
     Active Substance: ROTIGOTINE
     Dosage: 4 MILLIGRAM, ONCE DAILY (QD)
     Route: 062
     Dates: start: 20240711
  5. NEUPRO [Suspect]
     Active Substance: ROTIGOTINE
     Dosage: 2 MG PER DAY (ALTERNATE DAY FOR 10 DAYS)
     Route: 062
     Dates: start: 202407
  6. NEUPRO [Suspect]
     Active Substance: ROTIGOTINE
     Dosage: 4 MG PER DAY (ALTERNATE DAY FOR 10 DAYS)
     Route: 062
     Dates: start: 202407
  7. ALPRAZOLAM [Concomitant]
     Active Substance: ALPRAZOLAM
     Indication: Product used for unknown indication

REACTIONS (7)
  - Disability [Not Recovered/Not Resolved]
  - Muscular weakness [Not Recovered/Not Resolved]
  - Dyspnoea [Not Recovered/Not Resolved]
  - Gait disturbance [Not Recovered/Not Resolved]
  - Motor dysfunction [Not Recovered/Not Resolved]
  - Product availability issue [Unknown]
  - Off label use [Unknown]

NARRATIVE: CASE EVENT DATE: 20240701
